FAERS Safety Report 8147661-1 (Version None)
Quarter: 2012Q1

REPORT INFORMATION
  Report Type: 
  Country: None (occurrence: None)
  Receive Date: 20120218
  Receipt Date: 20110303
  Transmission Date: 20120608
  Serious: No
  Sender: FDA-Public Use
  Company Number: US-ALLERGAN-1103025US

PATIENT
  Sex: Female

DRUGS (3)
  1. BOTULINUM TOXIN TYPE A [Suspect]
     Indication: BLEPHAROSPASM
     Dosage: 30 UNITS, SINGLE
     Route: 030
     Dates: start: 20110106, end: 20110106
  2. BOTULINUM TOXIN TYPE A [Suspect]
     Indication: VOCAL CORD DISORDER
  3. BOTULINUM TOXIN TYPE A [Suspect]
     Indication: DYSTONIA

REACTIONS (3)
  - EYE IRRITATION [None]
  - SWELLING FACE [None]
  - DRUG INEFFECTIVE [None]
